FAERS Safety Report 10128665 (Version 1)
Quarter: 2014Q2

REPORT INFORMATION
  Report Type: Spontaneous
  Country: JP (occurrence: JP)
  Receive Date: 20140428
  Receipt Date: 20140428
  Transmission Date: 20141212
  Serious: Yes (Other)
  Sender: FDA-Public Use
  Company Number: JP-TEVA-477811ISR

PATIENT
  Age: 50 Year
  Sex: Male

DRUGS (2)
  1. RISPERIDONE [Suspect]
     Indication: PSYCHOTIC DISORDER
     Dosage: 12 MILLIGRAM DAILY;
     Route: 065
  2. HALOPERIDOL [Suspect]
     Indication: PSYCHOTIC DISORDER
     Dosage: 9 MILLIGRAM DAILY;
     Route: 065

REACTIONS (3)
  - Affective disorder [Recovering/Resolving]
  - Blunted affect [Recovering/Resolving]
  - Apathy [Recovering/Resolving]
